FAERS Safety Report 15493965 (Version 1)
Quarter: 2018Q4

REPORT INFORMATION
  Report Type: Spontaneous
  Country: US (occurrence: US)
  Receive Date: 20181012
  Receipt Date: 20181012
  Transmission Date: 20190205
  Serious: Yes (Disabling)
  Sender: FDA-Public Use
  Company Number: None

PATIENT
  Age: 40 Year
  Sex: Female
  Weight: 90 kg

DRUGS (1)
  1. SERTRALINE [Suspect]
     Active Substance: SERTRALINE HYDROCHLORIDE
     Indication: BIPOLAR DISORDER
     Dosage: ?          QUANTITY:1 TABLET(S);?
     Route: 048
     Dates: start: 20080701, end: 20181006

REACTIONS (10)
  - Tremor [None]
  - Feeling abnormal [None]
  - Fatigue [None]
  - Agitation [None]
  - Influenza [None]
  - Mood swings [None]
  - Panic attack [None]
  - Paraesthesia [None]
  - Pain [None]
  - Increased appetite [None]
